FAERS Safety Report 21113489 (Version 1)
Quarter: 2022Q3

REPORT INFORMATION
  Report Type: Spontaneous
  Country: US (occurrence: None)
  Receive Date: 20220721
  Receipt Date: 20220721
  Transmission Date: 20221026
  Serious: Yes (Hospitalization)
  Sender: FDA-Public Use
  Company Number: None

PATIENT
  Age: 45 Year
  Sex: Female
  Weight: 76 kg

DRUGS (1)
  1. MIRTAZAPINE [Suspect]
     Active Substance: MIRTAZAPINE
     Indication: Insomnia
     Dosage: 15 MG EVERY DAY PO
     Route: 048
     Dates: start: 20220309, end: 20220330

REACTIONS (4)
  - Dysphagia [None]
  - Therapy cessation [None]
  - Laryngeal oedema [None]
  - Xerosis [None]

NARRATIVE: CASE EVENT DATE: 20220330
